FAERS Safety Report 24609441 (Version 2)
Quarter: 2024Q4

REPORT INFORMATION
  Report Type: Spontaneous
  Country: JP (occurrence: JP)
  Receive Date: 20241112
  Receipt Date: 20241227
  Transmission Date: 20250115
  Serious: Yes (Other)
  Sender: ALEXION PHARMACEUTICALS
  Company Number: JP-AstraZeneca-CH-00741231A

PATIENT
  Age: 60 Year

DRUGS (10)
  1. ULTOMIRIS [Suspect]
     Active Substance: RAVULIZUMAB-CWVZ
     Indication: Neuromyelitis optica spectrum disorder
     Dosage: 2400 MILLIGRAM, SINGLE
  2. ULTOMIRIS [Suspect]
     Active Substance: RAVULIZUMAB-CWVZ
     Dosage: 3000 MILLIGRAM, Q8W
  3. BONALON [Concomitant]
     Active Substance: ALENDRONATE SODIUM
     Dosage: UNK
  4. NEXIUM [Concomitant]
     Active Substance: ESOMEPRAZOLE MAGNESIUM
     Dosage: UNK
     Route: 065
  5. SULFAMETHOXAZOLE\TRIMETHOPRIM [Concomitant]
     Active Substance: SULFAMETHOXAZOLE\TRIMETHOPRIM
     Dosage: UNK
     Route: 065
  6. ATORVASTATIN [Concomitant]
     Active Substance: ATORVASTATIN
     Dosage: UNK
     Route: 065
  7. LINAGLIPTIN [Concomitant]
     Active Substance: LINAGLIPTIN
     Dosage: UNK
     Route: 065
  8. ALFACALCIDOL [Concomitant]
     Active Substance: ALFACALCIDOL
     Dosage: UNK
     Route: 065
  9. PREDONINE [Concomitant]
     Active Substance: PREDNISOLONE
     Dosage: 6 MILLIGRAM
     Route: 065
  10. PREDONINE [Concomitant]
     Active Substance: PREDNISOLONE
     Dosage: 11 MILLIGRAM
     Route: 065

REACTIONS (1)
  - Neuromyelitis optica spectrum disorder [Not Recovered/Not Resolved]
